FAERS Safety Report 7514681-7 (Version None)
Quarter: 2011Q2

REPORT INFORMATION
  Report Type: 
  Country: None (occurrence: None)
  Receive Date: 20110601
  Receipt Date: 20110418
  Transmission Date: 20111010
  Serious: Yes (Other)
  Sender: FDA-Public Use
  Company Number: US-BAYER-201024058NA

PATIENT
  Age: 41 Year
  Sex: Female
  Weight: 51.701 kg

DRUGS (3)
  1. CIPRO [Concomitant]
  2. YASMIN [Suspect]
     Indication: MENSTRUATION IRREGULAR
     Dosage: UNK UNK, QD
     Route: 048
     Dates: start: 20030101, end: 20080101
  3. VALTREX [Concomitant]
     Route: 048

REACTIONS (6)
  - HAEMANGIOMA OF LIVER [None]
  - HEPATIC MASS [None]
  - HEPATIC NEOPLASM [None]
  - INJURY [None]
  - ORGAN FAILURE [None]
  - HEPATIC FAILURE [None]
